FAERS Safety Report 8416523-4 (Version None)
Quarter: 2012Q2

REPORT INFORMATION
  Report Type: 
  Country: None (occurrence: None)
  Receive Date: 20120606
  Receipt Date: 20120530
  Transmission Date: 20120825
  Serious: Yes (Other)
  Sender: FDA-Public Use
  Company Number: CA-GLAXOSMITHKLINE-A0979395A

PATIENT
  Sex: Female
  Weight: 86.4 kg

DRUGS (3)
  1. VENTOLIN [Concomitant]
     Route: 065
  2. COUGH MEDICATION [Concomitant]
  3. ADVAIR DISKUS 100/50 [Suspect]
     Indication: ASTHMA
     Dosage: 1PUFF TWICE PER DAY
     Route: 055
     Dates: start: 20080101

REACTIONS (4)
  - NASOPHARYNGITIS [None]
  - HEADACHE [None]
  - ASTHMA [None]
  - COUGH [None]
